FAERS Safety Report 4600039-7 (Version None)
Quarter: 2005Q1

REPORT INFORMATION
  Report Type: 
  Country: None (occurrence: None)
  Receive Date: 20050303
  Receipt Date: 20050216
  Transmission Date: 20050727
  Serious: Yes (Hospitalization, Other)
  Sender: FDA-Public Use
  Company Number: JP_050205898

PATIENT
  Age: 61 Year
  Sex: Female

DRUGS (4)
  1. PERMAX [Suspect]
     Indication: PARKINSON'S DISEASE
     Dosage: 750 UG DAY
     Dates: end: 20040706
  2. L-DOPA [Concomitant]
  3. CARBIDOPA W/LEVODOPA [Concomitant]
  4. SELEGILINE HCL [Concomitant]

REACTIONS (14)
  - BEDRIDDEN [None]
  - BRAIN SCAN ABNORMAL [None]
  - DIFFICULTY IN WALKING [None]
  - DRUG EFFECT DECREASED [None]
  - EYE MOVEMENT DISORDER [None]
  - GAIT DISTURBANCE [None]
  - HYPOTONIA [None]
  - MASKED FACIES [None]
  - MOVEMENT DISORDER [None]
  - MUSCLE RIGIDITY [None]
  - NUCHAL RIGIDITY [None]
  - REFLEXES ABNORMAL [None]
  - SLEEP ATTACKS [None]
  - SOMNOLENCE [None]
